FAERS Safety Report 4917135-7 (Version None)
Quarter: 2006Q1

REPORT INFORMATION
  Report Type: 
  Country: None (occurrence: None)
  Receive Date: 20060214
  Receipt Date: 20060127
  Transmission Date: 20060701
  Serious: Yes (Other)
  Sender: FDA-Public Use
  Company Number: GB200601004934

PATIENT
  Age: 31 Year
  Sex: Female

DRUGS (6)
  1. ZYPREXA [Suspect]
     Dosage: 20 MG
     Dates: start: 20040101
  2. PAROXETINE HCL [Concomitant]
  3. LITHIUM CARBONATE [Concomitant]
  4. LACTULOSE [Concomitant]
  5. SENOKOT [Concomitant]
  6. CO-CODAMOL (CODEINE PHOSPHATE, PARACETAMOL) [Concomitant]

REACTIONS (3)
  - FOOD CRAVING [None]
  - INTESTINAL OBSTRUCTION [None]
  - WEIGHT INCREASED [None]
